FAERS Safety Report 15854472 (Version 1)
Quarter: 2019Q1

REPORT INFORMATION
  Report Type: Spontaneous
  Country: ES (occurrence: ES)
  Receive Date: 20190122
  Receipt Date: 20190122
  Transmission Date: 20190417
  Serious: Yes (Other)
  Sender: FDA-Public Use
  Company Number: ES-AMGEN-ESPSP2019001565

PATIENT
  Age: 85 Year
  Sex: Female

DRUGS (4)
  1. CORTISONE [Concomitant]
     Active Substance: CORTISONE\HYDROCORTISONE
     Indication: THROMBOCYTOPENIA
  2. CALCIUM [Concomitant]
     Active Substance: CALCIUM
  3. PROLIA [Suspect]
     Active Substance: DENOSUMAB
     Indication: OSTEOPOROSIS
     Dosage: UNK
     Route: 065
     Dates: start: 2016
  4. DAPSON-FATOL [Concomitant]
     Active Substance: DAPSONE

REACTIONS (7)
  - Fall [Unknown]
  - Weight decreased [Unknown]
  - Renal failure [Unknown]
  - Rib fracture [Unknown]
  - Hiatus hernia [Unknown]
  - Bone pain [Unknown]
  - Bronchitis [Recovering/Resolving]

NARRATIVE: CASE EVENT DATE: 201808
